FAERS Safety Report 6338665-X (Version None)
Quarter: 2009Q3

REPORT INFORMATION
  Report Type: 
  Country: None (occurrence: None)
  Receive Date: 20090903
  Receipt Date: 20090825
  Transmission Date: 20100115
  Serious: Yes (Other)
  Sender: FDA-Public Use
  Company Number: US-BIOGENIDEC-2009BI024884

PATIENT
  Age: 56 Year
  Sex: Female

DRUGS (1)
  1. AVONEX [Suspect]
     Indication: MULTIPLE SCLEROSIS
     Route: 030
     Dates: start: 20071001

REACTIONS (5)
  - ABASIA [None]
  - CEREBROVASCULAR ACCIDENT [None]
  - GENERAL SYMPTOM [None]
  - MEMORY IMPAIRMENT [None]
  - WEIGHT DECREASED [None]
